FAERS Safety Report 6466087-X (Version None)
Quarter: 2009Q4

REPORT INFORMATION
  Report Type: 
  Country: None (occurrence: None)
  Receive Date: 20091127
  Receipt Date: 20091124
  Transmission Date: 20100525
  Serious: Yes (Hospitalization)
  Sender: FDA-Public Use
  Company Number: SP02644

PATIENT
  Age: 22 Year
  Sex: Male
  Weight: 77.1115 kg

DRUGS (3)
  1. APRISO [Suspect]
     Indication: ARTHRITIS
     Dosage: 4 CAPSULES AT NIGHT), ORAL
     Route: 048
     Dates: start: 20090601, end: 20091109
  2. APRISO [Suspect]
     Indication: COLITIS ULCERATIVE
     Dosage: 4 CAPSULES AT NIGHT), ORAL
     Route: 048
     Dates: start: 20090601, end: 20091109
  3. HUMIRA [Concomitant]

REACTIONS (6)
  - CHEST PAIN [None]
  - HYPERHIDROSIS [None]
  - MUSCULOSKELETAL PAIN [None]
  - NECK PAIN [None]
  - NIGHT SWEATS [None]
  - PERICARDITIS [None]
